FAERS Safety Report 4914028-6 (Version None)
Quarter: 2006Q1

REPORT INFORMATION
  Report Type: 
  Country: None (occurrence: None)
  Receive Date: 20060216
  Receipt Date: 20060207
  Transmission Date: 20060701
  Serious: Yes (Hospitalization)
  Sender: FDA-Public Use
  Company Number: US-ROCHE-435667

PATIENT
  Age: 43 Year
  Sex: Male
  Weight: 108.9 kg

DRUGS (2)
  1. TAMIFLU [Suspect]
     Indication: DRUG USE FOR UNKNOWN INDICATION
     Route: 048
     Dates: start: 20060203, end: 20060203
  2. UNSPECIFIED DRUG [Concomitant]
     Indication: URINARY TRACT INFECTION

REACTIONS (4)
  - BLOOD CREATININE INCREASED [None]
  - BLOOD UREA INCREASED [None]
  - RASH [None]
  - SYNCOPE [None]
